FAERS Safety Report 8161484-9 (Version None)
Quarter: 2012Q1

REPORT INFORMATION
  Report Type: 
  Country: None (occurrence: None)
  Receive Date: 20120224
  Receipt Date: 20120217
  Transmission Date: 20120608
  Serious: Yes (Hospitalization)
  Sender: FDA-Public Use
  Company Number: US-US-EMD SERONO, INC.-7114612

PATIENT
  Sex: Female
  Weight: 74 kg

DRUGS (1)
  1. REBIF [Suspect]
     Indication: PRODUCT USED FOR UNKNOWN INDICATION
     Route: 058
     Dates: start: 20091106

REACTIONS (4)
  - THROMBOSIS [None]
  - INJECTION SITE PAIN [None]
  - FATIGUE [None]
  - INJECTION SITE HAEMATOMA [None]
